FAERS Safety Report 5500744-4 (Version None)
Quarter: 2007Q4

REPORT INFORMATION
  Report Type: 
  Country: None (occurrence: None)
  Receive Date: 20071019
  Receipt Date: 20070124
  Transmission Date: 20080405
  Serious: Yes (Other)
  Sender: FDA-Public Use
  Company Number: 33814

PATIENT
  Sex: Female

DRUGS (1)
  1. FLUPHENAZINE DECANOATE [Suspect]

REACTIONS (1)
  - WEIGHT INCREASED [None]
